FAERS Safety Report 19099576 (Version 1)
Quarter: 2021Q2

REPORT INFORMATION
  Report Type: Spontaneous
  Country: TR (occurrence: TR)
  Receive Date: 20210406
  Receipt Date: 20210406
  Transmission Date: 20210717
  Serious: Yes (Hospitalization, Other)
  Sender: FDA-Public Use
  Company Number: TR-VALIDUS PHARMACEUTICALS LLC-TR-2021VAL000673

PATIENT
  Age: 68 Year
  Sex: Female

DRUGS (6)
  1. FUROSEMIDE. [Suspect]
     Active Substance: FUROSEMIDE
     Indication: CORONARY ARTERY DISEASE
  2. WARFARIN SODIUM. [Suspect]
     Active Substance: WARFARIN SODIUM
     Indication: CARDIAC FAILURE CONGESTIVE
  3. WARFARIN SODIUM. [Suspect]
     Active Substance: WARFARIN SODIUM
     Indication: CORONARY ARTERY DISEASE
     Dosage: UNK
     Route: 065
  4. DIGOXIN. [Suspect]
     Active Substance: DIGOXIN
     Indication: CARDIAC FAILURE CONGESTIVE
     Dosage: UNK
     Route: 065
  5. FUROSEMIDE. [Suspect]
     Active Substance: FUROSEMIDE
     Indication: CARDIAC FAILURE CONGESTIVE
     Dosage: UNK
     Route: 065
  6. DIGOXIN. [Suspect]
     Active Substance: DIGOXIN
     Indication: CORONARY ARTERY DISEASE

REACTIONS (17)
  - Blindness [Unknown]
  - Conjunctival oedema [Unknown]
  - Hyperuricaemia [Unknown]
  - Hypokalaemia [Unknown]
  - International normalised ratio increased [Unknown]
  - Exophthalmos [Unknown]
  - Cataract nuclear [Unknown]
  - Eye movement disorder [Unknown]
  - Respiratory tract infection [Unknown]
  - Flat anterior chamber of eye [Unknown]
  - Choroidal haemorrhage [Unknown]
  - Visual impairment [Unknown]
  - Eye pain [Unknown]
  - Hyponatraemia [Unknown]
  - Headache [Unknown]
  - Corneal oedema [Unknown]
  - Hepatic enzyme increased [Unknown]
